FAERS Safety Report 8988498 (Version 1)
Quarter: 2012Q4

REPORT INFORMATION
  Report Type: Spontaneous
  Country: CA (occurrence: None)
  Receive Date: 20121218
  Receipt Date: 20121218
  Transmission Date: 20130627
  Serious: Yes (Hospitalization)
  Sender: FDA-Public Use
  Company Number: COL_12814_2012

PATIENT

DRUGS (1)
  1. COLGATE TOOTHPASTE [Suspect]
     Indication: DENTAL CARIES
     Route: 048
     Dates: start: 20121126

REACTIONS (4)
  - Fluorosis [None]
  - Suicide attempt [None]
  - Intentional drug misuse [None]
  - Fluorosis [None]
